FAERS Safety Report 23525939 (Version 3)
Quarter: 2024Q1

REPORT INFORMATION
  Report Type: Spontaneous
  Country: BE (occurrence: BE)
  Receive Date: 20240215
  Receipt Date: 20240228
  Transmission Date: 20240410
  Serious: Yes (Hospitalization, Other)
  Sender: FDA-Public Use
  Company Number: BE-BoehringerIngelheim-2021-BI-131003

PATIENT
  Age: 81 Year
  Sex: Male

DRUGS (20)
  1. PANTOPRAZOLE SODIUM [Suspect]
     Active Substance: PANTOPRAZOLE SODIUM
     Indication: Product used for unknown indication
     Dosage: 40 MILLIGRAM, ONCE A DAY
     Route: 048
  2. ROSUVASTATIN CALCIUM [Suspect]
     Active Substance: ROSUVASTATIN CALCIUM
     Indication: Product used for unknown indication
     Dosage: 20 MILLIGRAM, ONCE A DAY
     Route: 048
  3. TAMSULOSIN [Suspect]
     Active Substance: TAMSULOSIN
     Indication: Product used for unknown indication
     Dosage: 0.4 MILLIGRAM, ONCE A DAY
     Route: 048
  4. MINERALS\VITAMINS [Suspect]
     Active Substance: MINERALS\VITAMINS
     Indication: Vitamin supplementation
     Dosage: UNK, ONCE A DAY
     Route: 048
  5. FINASTERIDE [Suspect]
     Active Substance: FINASTERIDE
     Indication: Product used for unknown indication
     Dosage: 5 MILLIGRAM, ONCE A DAY
     Route: 048
  6. SACUBITRIL\VALSARTAN [Suspect]
     Active Substance: SACUBITRIL\VALSARTAN
     Indication: Product used for unknown indication
     Dosage: UNK, TWO TIMES A DAY (49/51 MG)
     Route: 048
  7. NITROGLYCERIN [Suspect]
     Active Substance: NITROGLYCERIN
     Indication: Product used for unknown indication
     Dosage: 5 MILLIGRAM, ONCE A DAY
     Route: 062
  8. NITROGLYCERIN [Suspect]
     Active Substance: NITROGLYCERIN
     Dosage: 5 MILLIGRAM, ONCE A DAY
     Route: 062
  9. PRADAXA [Suspect]
     Active Substance: DABIGATRAN ETEXILATE MESYLATE
     Indication: Atrial fibrillation
     Dosage: 110 MILLIGRAM, ONCE A DAY
     Route: 065
     Dates: end: 20211006
  10. PRADAXA [Suspect]
     Active Substance: DABIGATRAN ETEXILATE MESYLATE
     Dosage: 150 MILLIGRAM, ONCE A DAY
     Route: 065
     Dates: start: 2020
  11. PRADAXA [Suspect]
     Active Substance: DABIGATRAN ETEXILATE MESYLATE
     Dosage: 110 MILLIGRAM, TWO TIMES A DAY
     Route: 048
     Dates: end: 20240122
  12. PRADAXA [Suspect]
     Active Substance: DABIGATRAN ETEXILATE MESYLATE
     Dosage: 110 MILLIGRAM, TWO TIMES A DAY
     Route: 048
     Dates: start: 20240129
  13. SPIRONOLACTONE [Suspect]
     Active Substance: SPIRONOLACTONE
     Indication: Product used for unknown indication
     Dosage: 25 MILLIGRAM, ONCE A DAY
     Route: 048
  14. CARVEDILOL [Suspect]
     Active Substance: CARVEDILOL
     Indication: Product used for unknown indication
     Dosage: 25 MILLIGRAM, TWO TIMES A DAY
     Route: 048
  15. CARVEDILOL [Suspect]
     Active Substance: CARVEDILOL
     Dosage: 25 MILLIGRAM, ONCE A DAY
     Route: 048
  16. BUMETANIDE [Suspect]
     Active Substance: BUMETANIDE
     Indication: Product used for unknown indication
     Dosage: 1 MILLIGRAM, ONCE A DAY
     Route: 048
  17. JARDIANCE [Suspect]
     Active Substance: EMPAGLIFLOZIN
     Indication: Product used for unknown indication
     Dosage: 25 MILLIGRAM, EVERY OTHER DAY (HALF A TABLET OF 25 MG DAILY)
     Route: 048
  18. MEMANTINE HYDROCHLORIDE [Suspect]
     Active Substance: MEMANTINE HYDROCHLORIDE
     Indication: Product used for unknown indication
     Dosage: UNK UNK, ONCE A DAY
     Route: 065
  19. BIPERIDEN [Suspect]
     Active Substance: BIPERIDEN
     Indication: Product used for unknown indication
     Dosage: 2 MILLIGRAM, ONCE A DAY
     Route: 048
  20. CLOPIDOGREL [Concomitant]
     Active Substance: CLOPIDOGREL BISULFATE
     Indication: Product used for unknown indication
     Dosage: UNK
     Route: 065
     Dates: end: 20211006

REACTIONS (5)
  - Gastrointestinal haemorrhage [Not Recovered/Not Resolved]
  - Faeces discoloured [Recovering/Resolving]
  - Fatigue [Not Recovered/Not Resolved]
  - Pallor [Not Recovered/Not Resolved]
  - Gastric haemorrhage [Recovering/Resolving]

NARRATIVE: CASE EVENT DATE: 20211006
